FAERS Safety Report 7428998-8 (Version None)
Quarter: 2011Q2

REPORT INFORMATION
  Report Type: 
  Country: None (occurrence: None)
  Receive Date: 20110421
  Receipt Date: 20110418
  Transmission Date: 20111010
  Serious: Yes (Hospitalization, Other)
  Sender: FDA-Public Use
  Company Number: US-B.I. PHARMACEUTICALS,INC./RIDGEFIELD-2011-BP-02628BP

PATIENT
  Age: 84 Year
  Sex: Male

DRUGS (5)
  1. SYNTHROID [Concomitant]
     Indication: THYROID DISORDER
     Route: 048
  2. SIMVASTATIN [Concomitant]
     Dosage: 40 MG
  3. LISINOPRIL [Concomitant]
     Dosage: 20 MG
  4. METOPROLOL TARTRATE [Concomitant]
     Dosage: 50 MG
  5. PRADAXA [Suspect]
     Indication: ATRIAL FIBRILLATION
     Dosage: 300 MG
     Route: 048
     Dates: start: 20110202

REACTIONS (3)
  - INTESTINAL OBSTRUCTION [None]
  - ANAL HAEMORRHAGE [None]
  - FAECALOMA [None]
